FAERS Safety Report 8115197-X (Version None)
Quarter: 2012Q1

REPORT INFORMATION
  Report Type: 
  Country: None (occurrence: None)
  Receive Date: 20120206
  Receipt Date: 20120202
  Transmission Date: 20120608
  Serious: Yes (Hospitalization)
  Sender: FDA-Public Use
  Company Number: US-B.I. PHARMACEUTICALS,INC./RIDGEFIELD-2012-BP-02086BP

PATIENT
  Sex: Female

DRUGS (5)
  1. MAGNESIUM [Concomitant]
     Indication: PROPHYLAXIS
     Route: 048
     Dates: start: 20070101
  2. LEVOTHYROXINE SODIUM [Concomitant]
     Indication: HYPOTHYROIDISM
     Route: 048
     Dates: start: 20070101
  3. VERAPAMIL [Concomitant]
     Indication: HYPERTENSION
     Route: 048
     Dates: start: 20070101
  4. TERAZOSIN HCL [Concomitant]
     Indication: HYPERTENSION
     Route: 048
     Dates: start: 20070101
  5. PRADAXA [Suspect]
     Indication: ATRIAL FIBRILLATION
     Dosage: 300 MG
     Route: 048
     Dates: start: 20110501

REACTIONS (6)
  - HIP FRACTURE [None]
  - OEDEMA PERIPHERAL [None]
  - GINGIVAL BLEEDING [None]
  - FALL [None]
  - BLOOD POTASSIUM DECREASED [None]
  - JOINT SWELLING [None]
